FAERS Safety Report 9735199 (Version 1)
Quarter: 2013Q4

REPORT INFORMATION
  Report Type: Spontaneous
  Country: US (occurrence: US)
  Receive Date: 20131206
  Receipt Date: 20131206
  Transmission Date: 20140711
  Serious: No
  Sender: FDA-Public Use
  Company Number: US-PFIZER INC-2013345891

PATIENT
  Age: 79 Year
  Sex: Female
  Weight: 43.99 kg

DRUGS (1)
  1. SUTENT [Suspect]
     Indication: ADENOID CYSTIC CARCINOMA
     Dosage: 50 MG, 1X/DAY
     Dates: start: 20131129

REACTIONS (2)
  - Dysphagia [Unknown]
  - Foreign body [Unknown]
